FAERS Safety Report 16871781 (Version 2)
Quarter: 2022Q1

REPORT INFORMATION
  Report Type: Report from Study
  Country: CN (occurrence: None)
  Receive Date: 20191001
  Receipt Date: 20220316
  Transmission Date: 20220424
  Serious: Yes (Hospitalization)
  Sender: FDA-Public Use
  Company Number: CN-ROCHE-2319338

PATIENT
  Age: 65 Year
  Sex: Male
  Weight: 65 kg

DRUGS (13)
  1. ATEZOLIZUMAB [Suspect]
     Active Substance: ATEZOLIZUMAB
     Indication: Hepatocellular carcinoma
     Dosage: MOST RECENT DOSE OF 1200 MG PRIOR TO EVENT ONSET ON 24/APR/2019
     Route: 041
     Dates: start: 20180904
  2. BEVACIZUMAB [Suspect]
     Active Substance: BEVACIZUMAB
     Indication: Hepatocellular carcinoma
     Dosage: MOST RECENT DOSE OF 952.5 MG PRIOR TO EVENT ONSET ON 20/FEB/2019
     Route: 042
     Dates: start: 20180904
  3. OMEPRAZOLE [Concomitant]
     Active Substance: OMEPRAZOLE
     Dates: start: 20180920
  4. ENTECAVIR [Concomitant]
     Active Substance: ENTECAVIR
     Dates: start: 2014
  5. IRBESARTAN [Concomitant]
     Active Substance: IRBESARTAN
     Indication: Hypertension
  6. ASPIRIN [Concomitant]
     Active Substance: ASPIRIN
     Indication: Acute myocardial infarction
     Dates: start: 20190302
  7. CLOPIDOGREL BISULFATE [Concomitant]
     Active Substance: CLOPIDOGREL BISULFATE
     Indication: Acute myocardial infarction
     Dates: start: 20190302
  8. PERINDOPRIL [Concomitant]
     Active Substance: PERINDOPRIL
     Indication: Acute myocardial infarction
     Dates: start: 20190302
  9. METOPROLOL SUCCINATE [Concomitant]
     Active Substance: METOPROLOL SUCCINATE
     Indication: Acute myocardial infarction
     Dates: start: 20190302
  10. RABEPRAZOLE SODIUM [Concomitant]
     Active Substance: RABEPRAZOLE SODIUM
     Indication: Acute myocardial infarction
     Dates: start: 20190302
  11. TRIMETAZIDINE [Concomitant]
     Active Substance: TRIMETAZIDINE
     Indication: Myocardial infarction
     Dates: start: 20190411
  12. MUSK [Concomitant]
     Indication: Myocardial infarction
     Dates: start: 20190411
  13. BICYCLOL [Concomitant]
     Active Substance: BICYCLOL
     Indication: Myocardial infarction
     Dates: start: 20190411

REACTIONS (1)
  - Pneumonia [Recovered/Resolved]

NARRATIVE: CASE EVENT DATE: 20190514
